FAERS Safety Report 18489881 (Version 1)
Quarter: 2020Q4

REPORT INFORMATION
  Report Type: Spontaneous
  Country: DE (occurrence: DE)
  Receive Date: 20201111
  Receipt Date: 20201111
  Transmission Date: 20210114
  Serious: Yes (Disabling, Other)
  Sender: FDA-Public Use
  Company Number: DE-PFIZER INC-2020442597

PATIENT
  Sex: Male
  Weight: 3.7 kg

DRUGS (2)
  1. CYTOTEC [Suspect]
     Active Substance: MISOPROSTOL
     Indication: LABOUR INDUCTION
     Dosage: 50 UG
     Route: 064
     Dates: start: 20160212
  2. CYTOTEC [Suspect]
     Active Substance: MISOPROSTOL
     Dosage: 70 UG
     Route: 064
     Dates: start: 20160212

REACTIONS (3)
  - Foetal distress syndrome [Recovered/Resolved with Sequelae]
  - Cerebral palsy [Not Recovered/Not Resolved]
  - Foetal exposure during delivery [Not Recovered/Not Resolved]

NARRATIVE: CASE EVENT DATE: 20160213
